FAERS Safety Report 8957185 (Version 2)
Quarter: 2013Q1

REPORT INFORMATION
  Report Type: Spontaneous
  Country: JP (occurrence: JP)
  Receive Date: 20121210
  Receipt Date: 20130220
  Transmission Date: 20140127
  Serious: Yes (Life-Threatening, Hospitalization)
  Sender: FDA-Public Use
  Company Number: JP-ROCHE-1164410

PATIENT
  Age: 65 Year
  Sex: Male
  Weight: 52 kg

DRUGS (12)
  1. AVASTIN [Suspect]
     Indication: COLORECTAL CANCER METASTATIC
     Route: 041
     Dates: start: 20100128, end: 20120707
  2. 5-FU [Concomitant]
     Indication: COLORECTAL CANCER METASTATIC
     Dosage: DOSAGE IS UNCERTAIN
     Route: 040
     Dates: start: 20100114, end: 20120310
  3. 5-FU [Concomitant]
     Indication: COLORECTAL CANCER METASTATIC
     Dosage: DOSAGE IS UNCERTAIN
     Route: 041
     Dates: start: 20100114, end: 20120310
  4. 5-FU [Concomitant]
     Indication: COLORECTAL CANCER METASTATIC
     Dosage: TWICE/2-3 WEEKS
     Route: 041
     Dates: start: 20120329, end: 20120707
  5. ISOVORIN [Concomitant]
     Indication: COLORECTAL CANCER METASTATIC
     Dosage: DOSAGE IS UNCERTAIN
     Route: 041
     Dates: start: 20100114, end: 20120310
  6. ISOVORIN [Concomitant]
     Indication: COLORECTAL CANCER METASTATIC
     Dosage: TWICE/2-3 WEEKS
     Route: 041
     Dates: start: 20120329, end: 20120707
  7. ELPLAT [Concomitant]
     Indication: COLORECTAL CANCER METASTATIC
     Dosage: ONCE/2-3 WEEKS
     Route: 041
     Dates: start: 20100114, end: 20120310
  8. TOPOTECIN [Concomitant]
     Indication: COLORECTAL CANCER METASTATIC
     Dosage: ONCE/2-3 WEEKS
     Route: 041
     Dates: start: 20120329, end: 20120707
  9. MAGMITT [Concomitant]
     Route: 048
  10. AMLODIN [Concomitant]
     Route: 048
  11. EMEND [Concomitant]
     Route: 048
  12. EMEND [Concomitant]
     Route: 048

REACTIONS (2)
  - Infective aneurysm [Not Recovered/Not Resolved]
  - Aortitis [Unknown]
